FAERS Safety Report 7173442-1 (Version None)
Quarter: 2010Q4

REPORT INFORMATION
  Report Type: 
  Country: None (occurrence: None)
  Receive Date: 20101202
  Receipt Date: 20101122
  Transmission Date: 20110411
  Serious: Yes (Hospitalization, Other)
  Sender: FDA-Public Use
  Company Number: 021675

PATIENT
  Sex: Female

DRUGS (16)
  1. ZAROXOLYN [Suspect]
     Dates: end: 20100607
  2. NOVORAPID FLEXPEN [Concomitant]
  3. OMEPRAZOL A [Concomitant]
  4. PAMOL /00020001/ [Concomitant]
  5. LEVOTHYROXINE SODIUM [Concomitant]
  6. METOPROLOLSUCCINAAT SANDOZ [Concomitant]
  7. SIMVASTATIN KRKA [Concomitant]
  8. TIMOSAN [Concomitant]
  9. LOSARTAN [Concomitant]
  10. DUROFERON [Concomitant]
  11. DIGOXIN [Concomitant]
  12. FRAGMIN [Concomitant]
  13. KALCIPOS-D [Concomitant]
  14. AZOPT [Concomitant]
  15. LANTUS [Concomitant]
  16. SODIUM PICOSULFATE [Concomitant]

REACTIONS (3)
  - DEHYDRATION [None]
  - GENERAL PHYSICAL HEALTH DETERIORATION [None]
  - HYPONATRAEMIA [None]
